FAERS Safety Report 11352250 (Version 1)
Quarter: 2015Q3

REPORT INFORMATION
  Report Type: Spontaneous
  Country: US (occurrence: US)
  Receive Date: 20150807
  Receipt Date: 20150807
  Transmission Date: 20151125
  Serious: No
  Sender: FDA-Public Use
  Company Number: US-JNJFOC-20150406902

PATIENT
  Age: 72 Year
  Sex: Female
  Weight: 64.86 kg

DRUGS (2)
  1. WOMENS ROGAINE UNSCENTED [Suspect]
     Active Substance: MINOXIDIL
     Route: 061
  2. WOMENS ROGAINE UNSCENTED [Suspect]
     Active Substance: MINOXIDIL
     Indication: ALOPECIA
     Dosage: ONE TIME, MORE THAN DIRECTED
     Route: 061
     Dates: start: 20150407

REACTIONS (3)
  - Foaming at mouth [Not Recovered/Not Resolved]
  - Productive cough [Not Recovered/Not Resolved]
  - Hyperhidrosis [Not Recovered/Not Resolved]

NARRATIVE: CASE EVENT DATE: 20150407
